FAERS Safety Report 18453644 (Version 1)
Quarter: 2020Q4

REPORT INFORMATION
  Report Type: Spontaneous
  Country: US (occurrence: US)
  Receive Date: 20201102
  Receipt Date: 20201102
  Transmission Date: 20210114
  Serious: No
  Sender: FDA-Public Use
  Company Number: US-FARMAPROD-202010-1317

PATIENT
  Age: 59 Year
  Sex: Male

DRUGS (1)
  1. OXERVATE [Suspect]
     Active Substance: CENEGERMIN-BKBJ
     Route: 047
     Dates: start: 20200926

REACTIONS (5)
  - Lacrimation increased [Unknown]
  - Rhinorrhoea [Unknown]
  - Intentional product misuse [Unknown]
  - Photophobia [Unknown]
  - Corneal deposits [Unknown]

NARRATIVE: CASE EVENT DATE: 20201001
